FAERS Safety Report 6553902-4 (Version None)
Quarter: 2010Q1

REPORT INFORMATION
  Report Type: 
  Country: None (occurrence: None)
  Receive Date: 20100127
  Receipt Date: 20100125
  Transmission Date: 20100710
  Serious: Yes (Death)
  Sender: FDA-Public Use
  Company Number: GB-WYE-G05097409

PATIENT
  Sex: Female

DRUGS (4)
  1. GEMTUZUMAB OZOGAMICIN [Suspect]
     Indication: ACUTE MYELOID LEUKAEMIA
     Dosage: UNKNOWN
     Dates: start: 20090520, end: 20090529
  2. DAUNORUBICIN HCL [Suspect]
     Dosage: UNKNOWN
     Dates: start: 20090520, end: 20090529
  3. DAUNORUBICIN HCL [Suspect]
     Dosage: UNKNOWN
     Dates: start: 20090713, end: 20090720
  4. ARA-C [Suspect]
     Dosage: UNKNOWN
     Dates: start: 20090930

REACTIONS (1)
  - DISEASE PROGRESSION [None]
